FAERS Safety Report 13139145 (Version 2)
Quarter: 2018Q4

REPORT INFORMATION
  Report Type: Spontaneous
  Country: JP (occurrence: JP)
  Receive Date: 20170123
  Receipt Date: 20181206
  Transmission Date: 20190204
  Serious: Yes (Disabling, Other)
  Sender: FDA-Public Use
  Company Number: JP-TEVA-693557ISR

PATIENT
  Age: 85 Year
  Sex: Female

DRUGS (7)
  1. BENET [Suspect]
     Active Substance: RISEDRONATE SODIUM
     Indication: OSTEOPOROSIS
     Dosage: 17.5 MG ONCE WEEKLY
     Route: 048
     Dates: start: 201107, end: 201403
  2. ITOROL [Concomitant]
     Active Substance: ISOSORBIDE MONONITRATE
     Indication: TOOTH EXTRACTION
     Dosage: 20 MILLIGRAM DAILY;
     Route: 048
  3. EPADEL [Concomitant]
     Active Substance: ICOSAPENT
     Indication: TOOTH EXTRACTION
     Dosage: 900 MILLIGRAM DAILY;
     Route: 048
  4. LANIRAPID [Concomitant]
     Active Substance: METILDIGOXIN
     Indication: TOOTH EXTRACTION
     Route: 048
  5. TAKEPRON [Concomitant]
     Active Substance: LANSOPRAZOLE
     Indication: TOOTH EXTRACTION
     Dosage: 15 MILLIGRAM DAILY;
     Route: 048
  6. DIOVAN [Concomitant]
     Active Substance: VALSARTAN
     Indication: HYPERTENSION
     Dosage: 80 MILLIGRAM DAILY;
     Route: 048
  7. GASCON [Concomitant]
     Active Substance: DIMETHICONE
     Indication: TOOTH EXTRACTION
     Dosage: 120 MILLIGRAM DAILY;
     Route: 048

REACTIONS (5)
  - Exposed bone in jaw [Recovered/Resolved]
  - Purulent discharge [Recovered/Resolved]
  - Osteonecrosis of jaw [Recovered/Resolved]
  - Bone sequestrum [Recovered/Resolved]
  - Pain [Recovered/Resolved]

NARRATIVE: CASE EVENT DATE: 201304
